FAERS Safety Report 12526753 (Version 1)
Quarter: 2016Q3

REPORT INFORMATION
  Report Type: Spontaneous
  Country: CZ (occurrence: CZ)
  Receive Date: 20160705
  Receipt Date: 20160705
  Transmission Date: 20161109
  Serious: Yes (Hospitalization, Other)
  Sender: FDA-Public Use
  Company Number: CZ-ACTAVIS-2016-14587

PATIENT
  Age: 24 Year
  Sex: Male

DRUGS (7)
  1. OLANZAPINE (UNKNOWN) [Suspect]
     Active Substance: OLANZAPINE
     Indication: SCHIZOPHRENIA
     Dosage: 20 MG, QPM
     Route: 065
  2. OLANZAPINE (UNKNOWN) [Suspect]
     Active Substance: OLANZAPINE
     Dosage: UNK
     Route: 030
     Dates: start: 2014
  3. OLANZAPINE (UNKNOWN) [Suspect]
     Active Substance: OLANZAPINE
     Dosage: 5 UNK, UNK
     Route: 048
     Dates: start: 201505
  4. RISPERIDONE (UNKNOWN) [Suspect]
     Active Substance: RISPERIDONE
     Indication: SCHIZOPHRENIA
     Dosage: UNK
     Route: 065
  5. MIRTAZAPINE (UNKNOWN) [Suspect]
     Active Substance: MIRTAZAPINE
     Indication: SCHIZOPHRENIA
     Dosage: 45 MG, QPM
     Route: 065
  6. OLANZAPINE (UNKNOWN) [Suspect]
     Active Substance: OLANZAPINE
     Dosage: UNK
     Route: 048
  7. CITALOPRAM [Suspect]
     Active Substance: CITALOPRAM HYDROBROMIDE
     Indication: SCHIZOPHRENIA
     Dosage: 20 MG, QAM
     Route: 065

REACTIONS (8)
  - Weight increased [Recovered/Resolved]
  - Apathy [Recovered/Resolved]
  - Extrapyramidal disorder [Unknown]
  - Blunted affect [Unknown]
  - Suicide attempt [Recovered/Resolved]
  - Fatigue [Recovered/Resolved]
  - Laziness [Recovered/Resolved]
  - Bradyphrenia [Unknown]
